FAERS Safety Report 5381643-8 (Version None)
Quarter: 2007Q3

REPORT INFORMATION
  Report Type: 
  Country: None (occurrence: None)
  Receive Date: 20070709
  Receipt Date: 20070628
  Transmission Date: 20080115
  Serious: Yes (Other)
  Sender: FDA-Public Use
  Company Number: GXKR2007ES05541

PATIENT
  Age: 56 Year
  Sex: Female

DRUGS (2)
  1. METHOTREXATE (NGX) [Suspect]
     Route: 065
  2. CYCLOSPORINE [Suspect]
     Route: 065

REACTIONS (2)
  - PANCREATITIS [None]
  - PNEUMONITIS [None]
